FAERS Safety Report 9893081 (Version 1)
Quarter: 2014Q1

REPORT INFORMATION
  Report Type: Report from Study
  Country: US (occurrence: US)
  Receive Date: 20140213
  Receipt Date: 20140213
  Transmission Date: 20141002
  Serious: Yes (Other)
  Sender: FDA-Public Use
  Company Number: US-ROCHE-1324028

PATIENT
  Age: 44 Year
  Sex: Female
  Weight: 65 kg

DRUGS (30)
  1. AVASTIN [Suspect]
     Indication: BREAST CANCER
     Route: 042
     Dates: start: 20120221
  2. AVASTIN [Suspect]
     Indication: BONE CANCER
  3. AVASTIN [Suspect]
     Indication: NEOPLASM MALIGNANT
  4. XELODA [Suspect]
     Indication: BREAST CANCER
     Route: 042
     Dates: start: 20110831, end: 201111
  5. IRINOTECAN [Concomitant]
     Route: 042
  6. XGEVA [Concomitant]
     Route: 058
     Dates: start: 20110303, end: 201202
  7. XGEVA [Concomitant]
     Route: 058
     Dates: start: 20110331
  8. LUPRON DEPOT [Concomitant]
     Route: 030
     Dates: start: 20080205, end: 20080627
  9. LUPRON DEPOT [Concomitant]
     Route: 030
     Dates: start: 20101214
  10. LUPRON DEPOT [Concomitant]
     Route: 030
  11. PEPCID [Concomitant]
     Route: 042
  12. ZOFRAN [Concomitant]
     Route: 042
  13. BENADRYL (UNITED STATES) [Concomitant]
     Route: 042
  14. CAMPTOSAR [Concomitant]
     Route: 042
  15. ATROPINE [Concomitant]
     Route: 042
  16. DEXAMETHASONE [Concomitant]
     Dosage: PRN
     Route: 048
  17. BUPHENINE [Concomitant]
     Dosage: 3.3G/M2   WITH MEALS
     Route: 048
  18. EFFEXOR XR [Concomitant]
     Route: 048
  19. DILAUDID [Concomitant]
     Dosage: Q 4 TO 6 HOURS AS NEEDED
     Route: 048
  20. IBUPROFEN [Concomitant]
     Dosage: PRN WITH FOOD
     Route: 048
  21. LISINOPRIL [Concomitant]
     Route: 048
  22. SPIRONOLACTONE [Concomitant]
     Route: 048
  23. ATIVAN [Concomitant]
     Dosage: PRN
     Route: 048
  24. COMPAZINE [Concomitant]
     Route: 048
  25. CARVEDILOL [Concomitant]
     Dosage: WITH FOOD
     Route: 048
  26. SENOKOT-S [Concomitant]
     Dosage: 8.6MG-50MG
     Route: 048
  27. FENTANYL [Concomitant]
     Dosage: APPLY 2 PATCH (200MCG/H) EVERY 72 HOURS
     Route: 062
  28. ALLEGRA [Concomitant]
     Route: 048
  29. OXYCODONE HCL [Concomitant]
     Route: 048
  30. FLEXERIL (UNITED STATES) [Concomitant]
     Dosage: AT BEDTIME
     Route: 048

REACTIONS (8)
  - Blood pressure decreased [Recovered/Resolved]
  - Dyspnoea [Unknown]
  - Wheezing [Unknown]
  - Diarrhoea [Unknown]
  - Dizziness [Unknown]
  - Haemorrhage [Unknown]
  - Disease progression [Unknown]
  - Hepatic steatosis [Unknown]
